FAERS Safety Report 19128858 (Version 1)
Quarter: 2021Q2

REPORT INFORMATION
  Report Type: Spontaneous
  Country: US (occurrence: US)
  Receive Date: 20210413
  Receipt Date: 20210413
  Transmission Date: 20210717
  Serious: No
  Sender: FDA-Public Use
  Company Number: US-ALLERGAN-2048225US

PATIENT
  Age: 62 Year
  Sex: Female

DRUGS (1)
  1. LATISSE [Suspect]
     Active Substance: BIMATOPROST
     Indication: GROWTH OF EYELASHES
     Dosage: 2 GTT, QD (ONE APPLICATOR FOR EACH EYE TO TOP LASHES ONLY)
     Dates: start: 202011

REACTIONS (4)
  - Ocular hyperaemia [Recovered/Resolved]
  - Periorbital swelling [Recovered/Resolved]
  - Swelling of eyelid [Recovered/Resolved]
  - Eye pruritus [Recovered/Resolved]
